FAERS Safety Report 5267802-3 (Version None)
Quarter: 2007Q1

REPORT INFORMATION
  Report Type: 
  Country: None (occurrence: None)
  Receive Date: 20070316
  Receipt Date: 20070308
  Transmission Date: 20070707
  Serious: Yes (Hospitalization, Other)
  Sender: FDA-Public Use
  Company Number: US-PFIZER INC-2007018168

PATIENT
  Sex: Male
  Weight: 79.4 kg

DRUGS (3)
  1. XANAX [Suspect]
     Indication: SLEEP DISORDER
  2. XELODA [Concomitant]
  3. LIPITOR [Concomitant]

REACTIONS (6)
  - ANXIETY [None]
  - CHRONIC LYMPHOCYTIC LEUKAEMIA [None]
  - COLON CANCER [None]
  - NEUTROPHIL COUNT [None]
  - PLATELET COUNT [None]
  - PROSTATE CANCER [None]
